FAERS Safety Report 9687657 (Version 2)
Quarter: 2014Q1

REPORT INFORMATION
  Report Type: Spontaneous
  Country: US (occurrence: US)
  Receive Date: 20131114
  Receipt Date: 20140220
  Transmission Date: 20141002
  Serious: No
  Sender: FDA-Public Use
  Company Number: US-PFIZER INC-2013321838

PATIENT
  Age: 12 Year
  Sex: Male

DRUGS (3)
  1. GENOTROPIN [Suspect]
     Indication: GROWTH HORMONE DEFICIENCY
     Dosage: 1.5 MG, UNK
     Route: 058
     Dates: start: 20131011, end: 20131106
  2. GENOTROPIN [Suspect]
     Dosage: 1.5 MG, UNK
     Route: 058
     Dates: start: 20131108
  3. GENOTROPIN [Suspect]
     Dosage: 1.6 MG, 6/7 DAYS/WK
     Route: 058

REACTIONS (2)
  - Headache [Recovered/Resolved]
  - Dizziness [Unknown]
